FAERS Safety Report 5318158-9 (Version None)
Quarter: 2007Q1

REPORT INFORMATION
  Report Type: 
  Country: None (occurrence: None)
  Receive Date: 20070201
  Receipt Date: 20060823
  Transmission Date: 20070707
  Serious: Yes (Hospitalization)
  Sender: FDA-Public Use
  Company Number: MEDI-0004870

PATIENT
  Age: 62 Year
  Sex: Female
  Weight: 69.4003 kg

DRUGS (8)
  1. ETHYOL [Suspect]
     Indication: RADIOTHERAPY
     Dosage: SEE IMAGE
     Route: 058
     Dates: start: 20060803, end: 20060811
  2. ETHYOL [Suspect]
     Indication: RADIOTHERAPY
     Dosage: SEE IMAGE
     Route: 058
     Dates: start: 20060811, end: 20060814
  3. RADIATION THERAPY [Concomitant]
  4. CARBOPLATIN [Concomitant]
  5. TAXOTERE [Concomitant]
  6. DECADRON [Concomitant]
  7. ALOXI [Concomitant]
  8. ATIVAN [Concomitant]

REACTIONS (2)
  - PYREXIA [None]
  - STOMATITIS [None]
